FAERS Safety Report 21399471 (Version 1)
Quarter: 2022Q4

REPORT INFORMATION
  Report Type: Spontaneous
  Country: DK (occurrence: DK)
  Receive Date: 20221001
  Receipt Date: 20221001
  Transmission Date: 20230113
  Serious: Yes (Hospitalization, Disabling)
  Sender: FDA-Public Use
  Company Number: None

PATIENT
  Age: 63 Year
  Sex: Female

DRUGS (1)
  1. ALENDRONIC ACID [Suspect]
     Active Substance: ALENDRONIC ACID
     Indication: Osteoporosis
     Dosage: STRENGTH: UNKNOWN , TABLET (UNCOATED, ORAL) , UNIT DOSE : 70 MG  , FREQUENCY TIME : 1 WEEKS  , DURAT
     Dates: start: 20121018, end: 20200303

REACTIONS (5)
  - Jaw clicking [Unknown]
  - Pain in jaw [Unknown]
  - Pathological fracture [Recovering/Resolving]
  - Osteoarthritis [Not Recovered/Not Resolved]
  - Swelling [Unknown]

NARRATIVE: CASE EVENT DATE: 20161013
